FAERS Safety Report 6498192-6 (Version None)
Quarter: 2009Q4

REPORT INFORMATION
  Report Type: 
  Country: None (occurrence: None)
  Receive Date: 20091127
  Receipt Date: 20090902
  Transmission Date: 20100525
  Serious: Yes (Hospitalization)
  Sender: FDA-Public Use
  Company Number: 288783

PATIENT
  Age: 63 Year
  Sex: Male
  Weight: 77.1 kg

DRUGS (15)
  1. NOVOLOG [Suspect]
     Indication: TYPE 1 DIABETES MELLITUS
     Dosage: SUBCUTAN.-PUMP
     Route: 058
     Dates: start: 20020101, end: 20090623
  2. ALBUTEROL /00139501/ (SALBUTAMOL) [Concomitant]
  3. ALENDRONATE SODIUM [Concomitant]
  4. ALLEGRA /01314201/ (FEXOFENADINE) [Concomitant]
  5. ALPHAGAN /01341101/ (BRIMONIDINE) [Concomitant]
  6. ASPIRIN [Concomitant]
  7. CALCIUM WITH VITAMIN D /0123310101/ (CALCIUM SODIUM LACTATE, ERGOCALCI [Concomitant]
  8. ADVAIR DISKUS 100/50 [Concomitant]
  9. PRAVASTATIN [Concomitant]
  10. POLYSACCHARIDE IRON (POLYSACCHARIDE-IRON COMPLEX) [Concomitant]
  11. MULTIVITAMIN AND MINERAL (ASCORBIC ACID, CALCIUM PANTOTHENATE, CALCIUM [Concomitant]
  12. OMEPRAZOLE [Concomitant]
  13. SIROLIMUS (RAPAMUNE) [Concomitant]
  14. LASIX [Concomitant]
  15. ZESTRIL [Concomitant]

REACTIONS (2)
  - BLOOD GLUCOSE INCREASED [None]
  - OEDEMA [None]
